FAERS Safety Report 4836854-4 (Version None)
Quarter: 2005Q4

REPORT INFORMATION
  Report Type: 
  Country: None (occurrence: None)
  Receive Date: 20051123
  Receipt Date: 20050831
  Transmission Date: 20060501
  Serious: Yes (Hospitalization)
  Sender: FDA-Public Use
  Company Number: US-MERCK-0508USA05123

PATIENT
  Age: 87 Year
  Sex: Female

DRUGS (6)
  1. FOSAMAX [Suspect]
     Indication: ARTHRITIS
     Route: 048
     Dates: start: 20050101, end: 20050701
  2. FOSAMAX [Suspect]
     Route: 048
     Dates: start: 20050701
  3. IBUPROFEN [Suspect]
     Indication: ARTHRITIS
     Route: 065
     Dates: start: 20050101, end: 20050101
  4. VITAMINS (UNSPECIFIED) [Concomitant]
     Route: 065
     Dates: start: 19550101
  5. TYLENOL [Suspect]
     Route: 065
  6. VIOXX [Suspect]
     Route: 048

REACTIONS (1)
  - ULCER HAEMORRHAGE [None]
